FAERS Safety Report 13998132 (Version 4)
Quarter: 2018Q2

REPORT INFORMATION
  Report Type: Report from Study
  Country: US (occurrence: US)
  Receive Date: 20170921
  Receipt Date: 20180601
  Transmission Date: 20180711
  Serious: Yes (Hospitalization)
  Sender: FDA-Public Use
  Company Number: US-ACTELION-A-NJ2017-159477

PATIENT
  Age: 9 Month
  Sex: Female

DRUGS (2)
  1. TRACLEER [Suspect]
     Active Substance: BOSENTAN
     Indication: PULMONARY ARTERIAL HYPERTENSION
     Dosage: 62.5 MG, QD
     Route: 048
     Dates: start: 20170814, end: 20180423
  2. TRACLEER [Suspect]
     Active Substance: BOSENTAN
     Dosage: 15.625 MG, BID
     Route: 048
     Dates: start: 20170812

REACTIONS (11)
  - Breath sounds abnormal [Recovering/Resolving]
  - Rhinovirus infection [Recovering/Resolving]
  - Nasal congestion [Unknown]
  - Stridor [Recovering/Resolving]
  - Influenza [Unknown]
  - Cough [Unknown]
  - Dyspnoea [Unknown]
  - Pyrexia [Unknown]
  - Bronchiolitis [Unknown]
  - Use of accessory respiratory muscles [Recovering/Resolving]
  - Alanine aminotransferase increased [Recovered/Resolved]

NARRATIVE: CASE EVENT DATE: 20170823
